FAERS Safety Report 5632493-6 (Version None)
Quarter: 2008Q1

REPORT INFORMATION
  Report Type: 
  Country: None (occurrence: None)
  Receive Date: 20080220
  Receipt Date: 20080212
  Transmission Date: 20080703
  Serious: Yes (Life-Threatening, Hospitalization, Disabling, Other)
  Sender: FDA-Public Use
  Company Number: US-GILEAD-2007-0014658

PATIENT
  Age: 43 Year
  Sex: Male

DRUGS (11)
  1. TRUVADA [Suspect]
     Indication: HIV INFECTION
     Route: 048
     Dates: start: 20040608, end: 20070825
  2. KALETRA [Concomitant]
     Route: 048
     Dates: end: 20070825
  3. DEPAKOTE [Concomitant]
     Route: 048
  4. KEPPRA [Concomitant]
     Dosage: VARIOUS DOSES
     Route: 048
  5. KLONOPIN [Concomitant]
     Route: 048
  6. FLUOXETINE [Concomitant]
     Route: 048
  7. LORAZEPAM [Concomitant]
     Route: 048
  8. SEROQUEL [Concomitant]
     Route: 048
  9. OMEPRAZOLE [Concomitant]
  10. LANSOPRAZOLE [Concomitant]
     Route: 048
  11. TRAZODONE HCL [Concomitant]
     Route: 048

REACTIONS (2)
  - HYPOPHOSPHATAEMIA [None]
  - RESPIRATORY ARREST [None]
